FAERS Safety Report 21114680 (Version 1)
Quarter: 2022Q3

REPORT INFORMATION
  Report Type: Spontaneous
  Country: US (occurrence: US)
  Receive Date: 20220721
  Receipt Date: 20220721
  Transmission Date: 20221026
  Serious: No
  Sender: FDA-Public Use
  Company Number: US-MEDEXUS PHARMA, INC.-2021MED00207

PATIENT
  Age: 48 Year
  Sex: Male
  Weight: 70.748 kg

DRUGS (5)
  1. RASUVO [Suspect]
     Active Substance: METHOTREXATE SODIUM
     Indication: Rheumatoid arthritis
     Dosage: UNK UNK, 1X/WEEK INJECTED INTO THIGH
     Dates: end: 202108
  2. RASUVO [Suspect]
     Active Substance: METHOTREXATE SODIUM
     Indication: Eye disorder
     Dosage: UNK UNK, 1X/WEEK INJECTED INTO THIGH
     Dates: start: 2021
  3. BENAZEPRIL [Concomitant]
     Active Substance: BENAZEPRIL HYDROCHLORIDE
  4. TAMSULOSIN [Concomitant]
     Active Substance: TAMSULOSIN
  5. FOLIC ACID [Concomitant]
     Active Substance: FOLIC ACID

REACTIONS (2)
  - Injection site pain [Recovering/Resolving]
  - Product quality issue [Recovered/Resolved]

NARRATIVE: CASE EVENT DATE: 20210808
